FAERS Safety Report 5820665-7 (Version None)
Quarter: 2008Q3

REPORT INFORMATION
  Report Type: 
  Country: None (occurrence: None)
  Receive Date: 20080724
  Receipt Date: 20080117
  Transmission Date: 20090109
  Serious: No
  Sender: FDA-Public Use
  Company Number: A0703860A

PATIENT
  Sex: Female

DRUGS (3)
  1. AVANDIA [Suspect]
     Dosage: 4U PER DAY
     Route: 048
     Dates: end: 20070801
  2. ASPIRIN [Concomitant]
  3. AVAPRO [Concomitant]

REACTIONS (2)
  - BLOOD GLUCOSE INCREASED [None]
  - OVULATION DISORDER [None]
